FAERS Safety Report 23812233 (Version 2)
Quarter: 2024Q3

REPORT INFORMATION
  Report Type: Spontaneous
  Country: US (occurrence: US)
  Receive Date: 20240503
  Receipt Date: 20240801
  Transmission Date: 20241016
  Serious: No
  Sender: BLUEPRINT MEDICINES
  Company Number: US-Blueprint Medicines Corporation-3335

PATIENT
  Sex: Male

DRUGS (3)
  1. AYVAKIT [Suspect]
     Active Substance: AVAPRITINIB
     Indication: Gastrointestinal stromal tumour
     Route: 065
     Dates: start: 20230718
  2. AYVAKIT [Suspect]
     Active Substance: AVAPRITINIB
     Route: 065
  3. AYVAKIT [Suspect]
     Active Substance: AVAPRITINIB
     Route: 065
     Dates: start: 20230718

REACTIONS (7)
  - Fluid retention [Unknown]
  - Adverse drug reaction [Unknown]
  - Hypoacusis [Unknown]
  - Tinnitus [Unknown]
  - Ear congestion [Unknown]
  - Swelling face [Unknown]
  - Hair colour changes [Unknown]
